FAERS Safety Report 22010270 (Version 1)
Quarter: 2023Q1

REPORT INFORMATION
  Report Type: Spontaneous
  Country: SE (occurrence: SE)
  Receive Date: 20230220
  Receipt Date: 20230220
  Transmission Date: 20230417
  Serious: Yes (Other)
  Sender: FDA-Public Use
  Company Number: None

PATIENT

DRUGS (11)
  1. NUCALA [Suspect]
     Active Substance: MEPOLIZUMAB
     Indication: Eosinophilic pneumonia
     Dosage: 100 MG, Q4W
     Route: 058
     Dates: start: 20220126, end: 20220206
  2. INSULIN HUMAN [Concomitant]
     Active Substance: INSULIN HUMAN
     Indication: Product used for unknown indication
     Dosage: UNK (100 IU/ML 44 E)
     Route: 058
     Dates: start: 2020
  3. RYBELSUS [Concomitant]
     Active Substance: SEMAGLUTIDE
     Indication: Product used for unknown indication
     Dosage: 3 MG, QD (3 MG 1X1)
     Route: 048
     Dates: start: 20220124
  4. PREDNISOLONE [Concomitant]
     Active Substance: PREDNISOLONE
     Indication: Product used for unknown indication
     Dosage: 5 MG, TID (5 MG 3X1)
     Route: 048
     Dates: start: 20210901
  5. ATORVASTATIN [Concomitant]
     Active Substance: ATORVASTATIN
     Indication: Product used for unknown indication
     Dosage: 10 MG, QD (10 MG 1X1)
     Route: 048
     Dates: start: 2017
  6. BISOPROLOL [Concomitant]
     Active Substance: BISOPROLOL
     Indication: Product used for unknown indication
     Dosage: 5 MG, QD (5 MG 1X1)
     Route: 048
     Dates: start: 2017
  7. ENALAPRIL [Concomitant]
     Active Substance: ENALAPRIL
     Indication: Product used for unknown indication
     Dosage: UNK UNK, QD (20 MG/12,5 MG 1X1)
     Route: 048
     Dates: start: 2017
  8. XARELTO [Concomitant]
     Active Substance: RIVAROXABAN
     Indication: Product used for unknown indication
     Dosage: 20 MG, QD (20 MG 1X1)
     Route: 048
     Dates: start: 2017
  9. OMEPRAZOL SANDOZ [Concomitant]
     Indication: Product used for unknown indication
     Dosage: 20 MG, QD (20 MG 1X1)
     Route: 048
     Dates: start: 2019
  10. LINAGLIPTIN [Concomitant]
     Active Substance: LINAGLIPTIN
     Indication: Product used for unknown indication
     Dosage: 5 MG, QD (5 MG 1X1)
     Route: 048
     Dates: start: 2019
  11. ALFUZOSIN [Concomitant]
     Active Substance: ALFUZOSIN
     Indication: Product used for unknown indication
     Dosage: 10 MG, QD (10 MG 1X1)
     Route: 048
     Dates: start: 2020

REACTIONS (2)
  - Loss of consciousness [Recovered/Resolved]
  - Dizziness [Recovered/Resolved]

NARRATIVE: CASE EVENT DATE: 20220206
